FAERS Safety Report 26081074 (Version 1)
Quarter: 2025Q4

REPORT INFORMATION
  Report Type: Spontaneous
  Country: US (occurrence: US)
  Receive Date: 20251124
  Receipt Date: 20251124
  Transmission Date: 20260117
  Serious: No
  Sender: ALVOGEN
  Company Number: US-ALVOGEN-2024095879

PATIENT
  Sex: Female

DRUGS (3)
  1. TERIPARATIDE [Suspect]
     Active Substance: TERIPARATIDE
     Indication: Product used for unknown indication
     Dosage: THIRD PEN RECEIVED ON 20-NOV-2024?STRENGTH: 620 MCG/2.48 ML 1 CT
     Dates: start: 20241120
  2. TERIPARATIDE [Suspect]
     Active Substance: TERIPARATIDE
     Indication: Product used for unknown indication
     Dosage: 2ND PEN LASTED FOR 21 DAYS?RECEIVED ON 26-OCT-2024?EXP. DATE: JUL-2025?620 MCG/2.48 ML 1 CT
     Dates: start: 20241026, end: 20241117
  3. TERIPARATIDE [Suspect]
     Active Substance: TERIPARATIDE
     Indication: Product used for unknown indication
     Dosage: FIRST PEN LASTED FOR 28?STRENGTH: 620 MCG/2.48 ML 1 CT

REACTIONS (2)
  - Product dose omission issue [Unknown]
  - Product packaging quantity issue [Unknown]

NARRATIVE: CASE EVENT DATE: 20241118
